FAERS Safety Report 12743791 (Version 2)
Quarter: 2016Q3

REPORT INFORMATION
  Report Type: Spontaneous
  Country: BR (occurrence: BR)
  Receive Date: 20160914
  Receipt Date: 20160930
  Transmission Date: 20161109
  Serious: Yes (Other)
  Sender: FDA-Public Use
  Company Number: PHHY2016BR123410

PATIENT
  Sex: Male
  Weight: 87 kg

DRUGS (7)
  1. CLOXAZOLAM [Suspect]
     Active Substance: CLOXAZOLAM
     Indication: ANXIETY
  2. AMLODIPINE [Concomitant]
     Active Substance: AMLODIPINE BESYLATE
     Indication: HYPERTENSION
     Dosage: 2 DF, QD,
     Route: 048
     Dates: start: 20160829
  3. NEPITIN [Concomitant]
     Indication: ANXIETY
     Dosage: 1 DF, QD,  WHENEVER IT FELT NECESSARY
     Route: 048
     Dates: start: 20160829
  4. ENALAPRIL [Concomitant]
     Active Substance: ENALAPRIL
     Indication: HYPERTENSION
     Dosage: 4 DF, QD
     Route: 048
     Dates: start: 2011
  5. SONEBON [Concomitant]
     Indication: PRODUCT USED FOR UNKNOWN INDICATION
     Route: 065
  6. CLOXAZOLAM [Suspect]
     Active Substance: CLOXAZOLAM
     Indication: INSOMNIA
     Dosage: 2 MG, QD
     Route: 048
     Dates: start: 20160825
  7. DIOVAN HCT [Concomitant]
     Active Substance: HYDROCHLOROTHIAZIDE\VALSARTAN
     Indication: HYPERTENSION
     Dosage: 1 DF, QD
     Route: 048
     Dates: start: 20160829

REACTIONS (5)
  - Labyrinthitis [Recovered/Resolved]
  - Dizziness [Recovered/Resolved]
  - Wrong technique in product usage process [Unknown]
  - Somnolence [Not Recovered/Not Resolved]
  - Erectile dysfunction [Recovering/Resolving]
